FAERS Safety Report 14320098 (Version 1)
Quarter: 2017Q4

REPORT INFORMATION
  Report Type: Report from Study
  Country: US (occurrence: US)
  Receive Date: 20171222
  Receipt Date: 20171222
  Transmission Date: 20180321
  Serious: Yes (Death, Hospitalization)
  Sender: FDA-Public Use
  Company Number: US-EXELIXIS-CABO-17011769

PATIENT
  Sex: Male

DRUGS (7)
  1. OXYCODONE-ACET [Concomitant]
     Active Substance: ACETAMINOPHEN\OXYCODONE HYDROCHLORIDE
  2. CARVEDILOL. [Concomitant]
     Active Substance: CARVEDILOL
  3. ATORVASTATIN [Concomitant]
     Active Substance: ATORVASTATIN
  4. FENTANYL. [Concomitant]
     Active Substance: FENTANYL
  5. XARELTO [Concomitant]
     Active Substance: RIVAROXABAN
  6. CICLOPIROX. [Concomitant]
     Active Substance: CICLOPIROX
  7. CABOMETYX [Suspect]
     Active Substance: CABOZANTINIB S-MALATE
     Indication: RENAL CANCER
     Dosage: 60 MG, QD
     Route: 048
     Dates: start: 20171117

REACTIONS (5)
  - Death [Fatal]
  - Hyperhidrosis [Unknown]
  - Pulmonary oedema [Unknown]
  - Asthenia [Unknown]
  - Dyspnoea [Unknown]
